FAERS Safety Report 9387188 (Version 1)
Quarter: 2013Q3

REPORT INFORMATION
  Report Type: Spontaneous
  Country: US (occurrence: US)
  Receive Date: 20130708
  Receipt Date: 20130708
  Transmission Date: 20140515
  Serious: Yes (Disabling, Other)
  Sender: FDA-Public Use
  Company Number: 2013SP001888

PATIENT
  Age: 84 Year
  Sex: Female
  Weight: 52 kg

DRUGS (6)
  1. BROVANA [Suspect]
     Indication: BRONCHIECTASIS
     Route: 055
  2. BROVANA [Suspect]
     Indication: BRONCHIECTASIS
     Route: 055
     Dates: start: 2005
  3. BENICAR [Concomitant]
     Indication: HYPERTENSION
  4. BENICAR [Concomitant]
     Indication: HYPERTENSION
     Dates: start: 2011
  5. ZOLPIDEM [Concomitant]
     Indication: INITIAL INSOMNIA
     Route: 048
     Dates: start: 2011
  6. LORAZEPAM [Concomitant]
     Indication: ANXIETY
     Dates: start: 2011

REACTIONS (5)
  - Retinal vein occlusion [Not Recovered/Not Resolved]
  - Visual impairment [Not Recovered/Not Resolved]
  - Blood pressure increased [Recovering/Resolving]
  - Dyspnoea [Recovering/Resolving]
  - Dizziness [Not Recovered/Not Resolved]
